FAERS Safety Report 5814525-5 (Version None)
Quarter: 2008Q3

REPORT INFORMATION
  Report Type: 
  Country: None (occurrence: None)
  Receive Date: 20080718
  Receipt Date: 20070618
  Transmission Date: 20090109
  Serious: No
  Sender: FDA-Public Use
  Company Number: US-KINGPHARMUSA00001-K200700756

PATIENT

DRUGS (4)
  1. LEVOXYL [Suspect]
     Indication: THYROIDECTOMY
     Dosage: 175 MCG, QD
     Route: 048
     Dates: end: 20070608
  2. CALCIUM [Concomitant]
     Dosage: UNK, PRN
     Route: 048
  3. CALCITRIOL [Concomitant]
     Dosage: UNK, PRN
  4. FLUOXETINE HYDROCHLORIDE [Concomitant]
     Dosage: 20 MG, PRN

REACTIONS (2)
  - HYPERTENSION [None]
  - HYPERTHYROIDISM [None]
